FAERS Safety Report 6124870-4 (Version None)
Quarter: 2009Q1

REPORT INFORMATION
  Report Type: 
  Country: None (occurrence: None)
  Receive Date: 20090319
  Receipt Date: 20090306
  Transmission Date: 20090719
  Serious: Yes (Hospitalization)
  Sender: FDA-Public Use
  Company Number: GB-PFIZER INC-2009181126

PATIENT

DRUGS (1)
  1. SUNITINIB MALATE [Suspect]
     Indication: RENAL CELL CARCINOMA
     Dosage: 37.5 MG, DAILY EVERY DAY  (TDD 37.5MG)
     Route: 048

REACTIONS (3)
  - ANAEMIA [None]
  - CONSTIPATION [None]
  - HYPOAESTHESIA FACIAL [None]
